FAERS Safety Report 25627950 (Version 1)
Quarter: 2025Q3

REPORT INFORMATION
  Report Type: Spontaneous
  Country: JP (occurrence: JP)
  Receive Date: 20250731
  Receipt Date: 20250731
  Transmission Date: 20251020
  Serious: Yes (Other)
  Sender: MERCK SHARP & DOHME LLC
  Company Number: JP-009507513-2313642

PATIENT
  Age: 74 Year
  Sex: Female

DRUGS (3)
  1. KEYTRUDA [Suspect]
     Active Substance: PEMBROLIZUMAB
     Indication: Oesophageal squamous cell carcinoma stage IV
  2. CISPLATIN [Suspect]
     Active Substance: CISPLATIN
     Indication: Oesophageal squamous cell carcinoma stage IV
  3. FLUOROURACIL [Suspect]
     Active Substance: FLUOROURACIL
     Indication: Oesophageal squamous cell carcinoma stage IV

REACTIONS (4)
  - Pneumonia [Recovering/Resolving]
  - Malaise [Unknown]
  - Decreased appetite [Unknown]
  - Oesophageal-pulmonary fistula [Unknown]
